FAERS Safety Report 7612761-9 (Version None)
Quarter: 2011Q3

REPORT INFORMATION
  Report Type: 
  Country: None (occurrence: None)
  Receive Date: 20110708
  Receipt Date: 20110627
  Transmission Date: 20111222
  Serious: Yes (Life-Threatening, Hospitalization, Other)
  Sender: FDA-Public Use
  Company Number: 2011SP027132

PATIENT
  Age: 17 Year
  Sex: Male
  Weight: 48.5 kg

DRUGS (12)
  1. MYONAL (EPERISONE HYDROCHLORIDE) [Suspect]
     Indication: MALIGNANT GLIOMA
     Dosage: 50 MG, TID, PO
     Route: 048
     Dates: start: 20110421, end: 20110428
  2. LOXONIN (LOXOPROFEN SODIUM HYDRATE) (LOXOPROFEN SODIUM) [Suspect]
     Indication: MALIGNANT GLIOMA
     Dosage: 60 MG, PRN, PO
     Route: 048
     Dates: start: 20110421, end: 20110428
  3. UBRETID (DISTIGMINE BROMIDE) [Suspect]
     Indication: MALIGNANT GLIOMA
     Dosage: 5 MG, QD, PO
     Route: 048
     Dates: start: 20110423, end: 20110428
  4. PRIMPERAN TAB [Suspect]
     Indication: MALIGNANT GLIOMA
     Dosage: 10 MG, QD, IV
     Route: 042
     Dates: start: 20110420, end: 20110428
  5. MUCOSTA (REBAMIPIDE) [Suspect]
     Indication: MALIGNANT GLIOMA
     Dosage: 100 MG, PRN, PO
     Route: 048
     Dates: start: 20110421, end: 20110428
  6. ZOLPIDEM TARTRATE [Suspect]
     Indication: MALIGNANT GLIOMA
     Dosage: 5 MG, QD, PO
     Route: 048
     Dates: start: 20110422, end: 20110428
  7. MAGMITT (MAGNESIUM OXIDE) [Suspect]
     Indication: MALIGNANT GLIOMA
     Dosage: 330 MG, TID, PO
     Route: 048
     Dates: start: 20110404, end: 20110428
  8. FENTANYL CITRATE [Suspect]
     Indication: ANALGESIC THERAPY
     Dosage: IV
     Route: 042
     Dates: start: 20110502, end: 20110530
  9. FAMOTIDINE [Suspect]
     Indication: MALIGNANT GLIOMA
     Dosage: 10 MG, BID, PO
     Route: 048
     Dates: start: 20110409, end: 20110428
  10. BETAMETHASONE [Suspect]
     Indication: MALIGNANT GLIOMA
     Dosage: 2 MG, BID, PO
     Route: 048
     Dates: start: 20110413, end: 20110428
  11. CEFACLOR [Suspect]
     Indication: ANALGESIC THERAPY
     Dosage: IV
     Route: 042
     Dates: start: 20110502, end: 20110530
  12. TEMODAL [Suspect]
     Indication: MALIGNANT GLIOMA
     Dosage: 75 MG/M2 QD, PO
     Route: 048
     Dates: start: 20110420, end: 20110428

REACTIONS (5)
  - COAGULOPATHY [None]
  - ERYTHEMA MULTIFORME [None]
  - APHTHOUS STOMATITIS [None]
  - HEPATIC FUNCTION ABNORMAL [None]
  - SKIN ULCER [None]
